FAERS Safety Report 5839556-0 (Version None)
Quarter: 2008Q3

REPORT INFORMATION
  Report Type: 
  Country: None (occurrence: None)
  Receive Date: 20080811
  Receipt Date: 20080728
  Transmission Date: 20090109
  Serious: Yes (Hospitalization, Other)
  Sender: FDA-Public Use
  Company Number: US-TEVA-175283USA

PATIENT
  Age: 55 Year
  Sex: Female

DRUGS (1)
  1. CEFTRIAXONE [Suspect]

REACTIONS (1)
  - CHOLESTATIC LIVER INJURY [None]
